FAERS Safety Report 8890316 (Version 1)
Quarter: 2012Q4

REPORT INFORMATION
  Report Type: 
  Country: US (occurrence: US)
  Receive Date: 20121107
  Receipt Date: 20121107
  Transmission Date: 20130627
  Serious: No
  Sender: FDA-Public Use
  Company Number: US-BAYER-2012-115987

PATIENT
  Age: 73 Year
  Sex: Male

DRUGS (1)
  1. MAGNEVIST [Suspect]
     Indication: MRI
     Dosage: 16 ml, ONCE
     Dates: start: 20121101, end: 20121101

REACTIONS (5)
  - Eye swelling [None]
  - Sneezing [None]
  - Cough [None]
  - Flushing [None]
  - Nasal congestion [None]
